FAERS Safety Report 21796312 (Version 1)
Quarter: 2022Q4

REPORT INFORMATION
  Report Type: Spontaneous
  Country: GR (occurrence: GR)
  Receive Date: 20221229
  Receipt Date: 20221229
  Transmission Date: 20230113
  Serious: Yes (Life-Threatening)
  Sender: FDA-Public Use
  Company Number: None

PATIENT
  Age: 58 Year
  Sex: Male
  Weight: 90 kg

DRUGS (1)
  1. BRIDION [Suspect]
     Active Substance: SUGAMMADEX
     Dosage: 200MG SINGLE DOSE
     Route: 042

REACTIONS (2)
  - Hypotension [Recovering/Resolving]
  - Hypoxia [Recovering/Resolving]

NARRATIVE: CASE EVENT DATE: 20221213
